FAERS Safety Report 4790113-7 (Version None)
Quarter: 2005Q4

REPORT INFORMATION
  Report Type: 
  Country: None (occurrence: None)
  Receive Date: 20051005
  Receipt Date: 20051005
  Transmission Date: 20060501
  Serious: Yes (Hospitalization)
  Sender: FDA-Public Use
  Company Number: None

PATIENT
  Sex: Female
  Weight: 79.8331 kg

DRUGS (4)
  1. TYLENOL W/ CODEINE NO. 3 [Suspect]
     Indication: ARTHRALGIA
     Dosage: PRN-ORAL
     Route: 048
     Dates: start: 20040101
  2. TYLENOL W/ CODEINE NO. 3 [Suspect]
     Indication: JOINT INJURY
     Dosage: PRN-ORAL
     Route: 048
     Dates: start: 20040101
  3. TYLENOL W/ CODEINE NO. 3 [Suspect]
     Indication: ARTHRALGIA
     Dosage: PRN-ORAL
     Route: 048
     Dates: start: 20050923
  4. TYLENOL W/ CODEINE NO. 3 [Suspect]
     Indication: JOINT INJURY
     Dosage: PRN-ORAL
     Route: 048
     Dates: start: 20050923

REACTIONS (2)
  - DEHYDRATION [None]
  - PANCREATITIS [None]
